FAERS Safety Report 5116816-2 (Version None)
Quarter: 2006Q3

REPORT INFORMATION
  Report Type: 
  Country: None (occurrence: None)
  Receive Date: 20060925
  Receipt Date: 20060914
  Transmission Date: 20061208
  Serious: Yes (Hospitalization)
  Sender: FDA-Public Use
  Company Number: OMPQ-NO-0609S-1362

PATIENT
  Age: 62 Year
  Sex: Female
  Weight: 60.4 kg

DRUGS (2)
  1. OMNIPAQUE 140 [Suspect]
     Indication: ABDOMINAL PAIN
     Dosage: 100 ML, SINGLE DOSE, I.V.
     Route: 042
     Dates: start: 20060804, end: 20060804
  2. HYOSCINE BUTYLBROMIDE (BUSCOPAN) [Concomitant]

REACTIONS (13)
  - ALANINE AMINOTRANSFERASE INCREASED [None]
  - ASPARTATE AMINOTRANSFERASE INCREASED [None]
  - BLOOD CREATINE PHOSPHOKINASE INCREASED [None]
  - BLOOD LACTATE DEHYDROGENASE INCREASED [None]
  - DEAFNESS [None]
  - DYSKINESIA [None]
  - FACE OEDEMA [None]
  - GAIT DISTURBANCE [None]
  - HYPOKALAEMIA [None]
  - HYPONATRAEMIA [None]
  - HYPOXIA [None]
  - MYOGLOBINURIA [None]
  - URTICARIA [None]
